FAERS Safety Report 21969910 (Version 3)
Quarter: 2023Q1

REPORT INFORMATION
  Report Type: Report from Study
  Country: US (occurrence: US)
  Receive Date: 20230208
  Receipt Date: 20230320
  Transmission Date: 20230417
  Serious: No
  Sender: FDA-Public Use
  Company Number: US-002147023-NVSC2023US029079

PATIENT
  Sex: Female

DRUGS (4)
  1. PIQRAY [Suspect]
     Active Substance: ALPELISIB
     Indication: Product used for unknown indication
     Dosage: UNK (IN MORNING AND NIGHT FOR THREE WEEKS)
     Route: 065
  2. PIQRAY [Suspect]
     Active Substance: ALPELISIB
     Dosage: 150 MG, QD
     Route: 065
  3. PIQRAY [Suspect]
     Active Substance: ALPELISIB
     Dosage: 300 MG, QD
     Route: 065
  4. PIQRAY [Suspect]
     Active Substance: ALPELISIB
     Dosage: 150 MG, QD
     Route: 065

REACTIONS (5)
  - Oral pain [Unknown]
  - Nausea [Unknown]
  - Fatigue [Unknown]
  - Asthenia [Unknown]
  - Product availability issue [Unknown]
